FAERS Safety Report 8721230 (Version 2)
Quarter: 2012Q4

REPORT INFORMATION
  Report Type: Report from Study
  Country: DE (occurrence: DE)
  Receive Date: 20120813
  Receipt Date: 20120911
  Transmission Date: 20130627
  Serious: Yes (Hospitalization)
  Sender: FDA-Public Use
  Company Number: DE-ELI_LILLY_AND_COMPANY-DE201208000598

PATIENT
  Age: 67 Year
  Sex: Female
  Weight: 75 kg

DRUGS (4)
  1. PRASUGREL HYDROCHLORIDE [Suspect]
     Indication: ACUTE MYOCARDIAL INFARCTION
     Dosage: 60 mg, UNK
     Route: 048
     Dates: start: 20120729
  2. PRASUGREL HYDROCHLORIDE [Suspect]
     Dosage: 10 mg, UNK
     Route: 048
     Dates: start: 20120729
  3. ASS [Concomitant]
  4. REOPRO [Concomitant]
     Dosage: UNK
     Dates: end: 20120730

REACTIONS (1)
  - Cardiac tamponade [Recovered/Resolved]
